FAERS Safety Report 23567387 (Version 2)
Quarter: 2024Q2

REPORT INFORMATION
  Report Type: Spontaneous
  Country: US (occurrence: US)
  Receive Date: 20240226
  Receipt Date: 20240409
  Transmission Date: 20240716
  Serious: No
  Sender: FDA-Public Use
  Company Number: US-PFIZER INC-202400047882

PATIENT
  Age: 71 Year
  Sex: Female
  Weight: 88.9 kg

DRUGS (2)
  1. PAXLOVID [Suspect]
     Active Substance: NIRMATRELVIR\RITONAVIR
     Indication: COVID-19 treatment
     Dosage: UNK
  2. PRIMIDONE [Suspect]
     Active Substance: PRIMIDONE
     Dosage: UNK

REACTIONS (1)
  - Intercepted product prescribing error [Unknown]
